FAERS Safety Report 4302018-6 (Version None)
Quarter: 2004Q1

REPORT INFORMATION
  Report Type: 
  Country: None (occurrence: None)
  Receive Date: 20040220
  Receipt Date: 20040206
  Transmission Date: 20041129
  Serious: Yes (Life-Threatening, Hospitalization)
  Sender: FDA-Public Use
  Company Number: 2004008071

PATIENT
  Age: 67 Year
  Sex: Male
  Weight: 108 kg

DRUGS (31)
  1. SORTIS (ATORVASTATIN) [Suspect]
     Indication: HYPERLIPIDAEMIA
     Dosage: 10 MG (DAILY), ORAL
     Route: 048
  2. PROPOFOL [Suspect]
     Indication: ILL-DEFINED DISORDER
  3. AMIODARONE HCL [Suspect]
     Indication: ILL-DEFINED DISORDER
  4. FLUNITRAZEPAM (FLUNITRAZEPAM) [Suspect]
     Indication: ILL-DEFINED DISORDER
  5. SUFENTANIL CITRATE [Concomitant]
  6. LIDOCAINE HYDROCHLORIDE [Concomitant]
  7. PIRITRAMIDE (PIRITRAMIDE) [Concomitant]
  8. SIMVASTATIN [Concomitant]
  9. CAPTOPRIL [Concomitant]
  10. ENLAPRIL (ENALAPRIL) [Concomitant]
  11. DEXAMETHASONE SODIUM PHOSPHATE [Concomitant]
  12. ETOMIDATE (ETOMIDATE) [Concomitant]
  13. PANCURONIUM BROMIDE [Concomitant]
  14. CEFOTIAM (CEFOTIAM) [Concomitant]
  15. FUROSEMIDE [Concomitant]
  16. ISOSORBIDE DINITRATE [Concomitant]
  17. ISOSORBIDE MONONITRATE [Concomitant]
  18. METOPROLOL (METOPROLOL) [Concomitant]
  19. ACETYLSALICYLIC ACID SRT [Concomitant]
  20. GLIMEPIRIDE [Concomitant]
  21. INSULIN [Concomitant]
  22. ALLOPURINOL [Concomitant]
  23. SERETIDE MITE (FLUTICASONE PROPIONATE, SALMETEROL XINAFOATE) [Concomitant]
  24. THEOPHYLLINE [Concomitant]
  25. ENOXIMONE (ENOXIMONE) [Concomitant]
  26. NITROGLYCERIN [Concomitant]
  27. METHYLPREDNISOLONE [Concomitant]
  28. ALL OTHER THERAPEUTIC PRODUCTS [Concomitant]
  29. EPINEPHRINE [Concomitant]
  30. DOPAMINE HCL [Concomitant]
  31. NOREPINEPHRINE (NOREPINEPHRINE) [Concomitant]

REACTIONS (4)
  - DIALYSIS [None]
  - DRUG INTERACTION [None]
  - LABORATORY TEST ABNORMAL [None]
  - MUSCLE DISORDER [None]
